FAERS Safety Report 18850787 (Version 2)
Quarter: 2021Q1

REPORT INFORMATION
  Report Type: Spontaneous
  Country: US (occurrence: US)
  Receive Date: 20210204
  Receipt Date: 20210213
  Transmission Date: 20210420
  Serious: No
  Sender: FDA-Public Use
  Company Number: US-SA-2021SA033215

PATIENT
  Age: 57 Year
  Sex: Female

DRUGS (1)
  1. DUPIXENT [Suspect]
     Active Substance: DUPILUMAB
     Indication: DERMATITIS ALLERGIC
     Dosage: 300 MG, QOW
     Route: 058
     Dates: start: 20201013

REACTIONS (2)
  - Eye pruritus [Unknown]
  - Product use in unapproved indication [Unknown]

NARRATIVE: CASE EVENT DATE: 20201013
